FAERS Safety Report 14766181 (Version 1)
Quarter: 2018Q2

REPORT INFORMATION
  Report Type: Spontaneous
  Country: US (occurrence: US)
  Receive Date: 20180416
  Receipt Date: 20180416
  Transmission Date: 20180711
  Serious: No
  Sender: FDA-Public Use
  Company Number: US-ASTELLAS-2017US025862

PATIENT
  Age: 6 Year
  Sex: Female

DRUGS (3)
  1. PROGRAF [Suspect]
     Active Substance: TACROLIMUS\TACROLIMUS ANHYDROUS
     Indication: HEART TRANSPLANT
     Route: 065
  2. RAPAMUNE [Interacting]
     Active Substance: SIROLIMUS
     Indication: HEART TRANSPLANT
     Dosage: 1MG COMBINE WITH 0.5MG, ONCE DAILY
     Route: 048
     Dates: start: 20170307
  3. RAPAMUNE [Interacting]
     Active Substance: SIROLIMUS
     Indication: HEART TRANSPLANT
     Dosage: 1MG COMBINE WITH 0.5MG, ONCE DAILY
     Route: 048
     Dates: start: 20170307

REACTIONS (2)
  - Off label use [Unknown]
  - Drug interaction [Unknown]
